FAERS Safety Report 13595169 (Version 1)
Quarter: 2020Q3

REPORT INFORMATION
  Report Type: Report from Study
  Country: JP (occurrence: JP)
  Receive Date: 20170531
  Receipt Date: 20170531
  Transmission Date: 20201105
  Serious: Yes (Death, Hospitalization)
  Sender: FDA-Public Use
  Company Number: JP-ASTRAZENECA-2016SE61525

PATIENT
  Age: 24046 Day
  Sex: Male

DRUGS (25)
  1. OXYNORM [Concomitant]
     Active Substance: OXYCODONE HYDROCHLORIDE
     Indication: DRUG ERUPTION
     Dosage: 5.0MG AS REQUIRED
     Route: 048
     Dates: start: 20160503
  2. RINDERON (BETAMETHASONE) [Suspect]
     Active Substance: BETAMETHASONE
     Indication: BRAIN OEDEMA
     Route: 042
     Dates: start: 20160516, end: 20160516
  3. LAXOBERON [Concomitant]
     Active Substance: SODIUM PICOSULFATE
     Indication: CONSTIPATION
     Dosage: PRN
     Route: 048
     Dates: start: 20160509
  4. NERISONA [Concomitant]
     Active Substance: DIFLUCORTOLONE VALERATE
     Indication: DRUG ERUPTION
     Dosage: 24.0MG AS REQUIRED
     Route: 062
     Dates: start: 20160524, end: 20160527
  5. CELECOX [Concomitant]
     Active Substance: CELECOXIB
     Indication: CANCER PAIN
     Route: 048
  6. MEDI4736 [Suspect]
     Active Substance: DURVALUMAB
     Indication: NON-SMALL CELL LUNG CANCER
     Route: 042
     Dates: start: 20160302, end: 20160302
  7. MEDI4736 [Suspect]
     Active Substance: DURVALUMAB
     Indication: NON-SMALL CELL LUNG CANCER
     Route: 042
     Dates: start: 20160401, end: 20160401
  8. TREMELIMUMAB. [Suspect]
     Active Substance: TREMELIMUMAB
     Indication: NON-SMALL CELL LUNG CANCER
     Route: 042
     Dates: start: 20160428, end: 20160428
  9. RINDERON (BETAMETHASONE) [Suspect]
     Active Substance: BETAMETHASONE
     Indication: BRAIN OEDEMA
     Route: 048
     Dates: start: 20160604
  10. RINDERON V [Concomitant]
     Active Substance: BETAMETHASONE VALERATE
     Indication: RASH
     Dosage: PRN
     Route: 062
     Dates: start: 20160428
  11. MEDI4736 [Suspect]
     Active Substance: DURVALUMAB
     Indication: NON-SMALL CELL LUNG CANCER
     Route: 042
     Dates: start: 20160428, end: 20160428
  12. TREMELIMUMAB. [Suspect]
     Active Substance: TREMELIMUMAB
     Indication: NON-SMALL CELL LUNG CANCER
     Route: 042
     Dates: start: 20160302, end: 20160302
  13. TREMELIMUMAB. [Suspect]
     Active Substance: TREMELIMUMAB
     Indication: NON-SMALL CELL LUNG CANCER
     Route: 042
     Dates: start: 20160401, end: 20160401
  14. RINDERON (BETAMETHASONE) [Suspect]
     Active Substance: BETAMETHASONE
     Indication: BRAIN OEDEMA
     Route: 048
     Dates: start: 20160524, end: 20160527
  15. SENNO SIDE [Concomitant]
     Indication: CONSTIPATION
     Dosage: 24.0MG AS REQUIRED
     Route: 048
     Dates: start: 20160508, end: 20160526
  16. OXYNORM [Concomitant]
     Active Substance: OXYCODONE HYDROCHLORIDE
     Indication: DRUG ERUPTION
     Dosage: 2.5MG AS REQUIRED
     Route: 048
     Dates: start: 20160524, end: 20160602
  17. RINDERON (BETAMETHASONE) [Suspect]
     Active Substance: BETAMETHASONE
     Indication: BRAIN OEDEMA
     Route: 042
     Dates: start: 20160519, end: 20160521
  18. RINDERON (BETAMETHASONE) [Suspect]
     Active Substance: BETAMETHASONE
     Indication: BRAIN OEDEMA
     Route: 048
     Dates: start: 20160528, end: 20160603
  19. SPIRIVA [Concomitant]
     Active Substance: TIOTROPIUM BROMIDE MONOHYDRATE
     Indication: CHRONIC OBSTRUCTIVE PULMONARY DISEASE
     Route: 055
     Dates: start: 20160309
  20. ROZEREM [Concomitant]
     Active Substance: RAMELTEON
     Indication: INSOMNIA
     Route: 048
     Dates: start: 20160315
  21. ALLERMIST [Concomitant]
     Active Substance: FLUTICASONE FUROATE
     Indication: SEASONAL ALLERGY
     Route: 045
     Dates: start: 20160401
  22. GOREISAN [Concomitant]
     Active Substance: HERBALS
     Indication: DRUG ERUPTION
     Dosage: 24.0MG AS REQUIRED
     Route: 062
     Dates: start: 20160524, end: 20160527
  23. RINDERON (BETAMETHASONE) [Suspect]
     Active Substance: BETAMETHASONE
     Indication: BRAIN OEDEMA
     Route: 042
     Dates: start: 20160517, end: 20160518
  24. RINDERON (BETAMETHASONE) [Suspect]
     Active Substance: BETAMETHASONE
     Indication: BRAIN OEDEMA
     Route: 042
     Dates: start: 20160522, end: 20160523
  25. CETIRIZINE HCL [Concomitant]
     Active Substance: CETIRIZINE HYDROCHLORIDE
     Indication: SEASONAL ALLERGY
     Route: 048

REACTIONS (1)
  - Herpes zoster [Recovered/Resolved]

NARRATIVE: CASE EVENT DATE: 20160531
